FAERS Safety Report 11637261 (Version 1)
Quarter: 2015Q4

REPORT INFORMATION
  Report Type: Spontaneous
  Country: US (occurrence: US)
  Receive Date: 20151016
  Receipt Date: 20151016
  Transmission Date: 20160304
  Serious: No
  Sender: FDA-Public Use
  Company Number: US-TORRENT-00000991

PATIENT
  Age: 78 Year
  Sex: Female

DRUGS (3)
  1. DULOXETINE. [Concomitant]
     Active Substance: DULOXETINE
     Dosage: PREVIOUSLY USED 120MG AND THEN SLOWLY REDUCED DULOXATINE
  2. RITUXAN [Concomitant]
     Active Substance: RITUXIMAB
     Dosage: THREE TIMES EVERY SIX MONTHS
     Dates: start: 2013
  3. CITALOPRAM HYDROBROMIDE- CITALOPRAM HYDROBROMIDE TABLET [Suspect]
     Active Substance: CITALOPRAM HYDROBROMIDE
     Indication: DEPRESSION
     Dosage: SARTED CITALOPRAM 10MG ON JULY 9 THEN 20MG ON JULY 25TH AND THEN 30MG ON AUG 5.
     Dates: start: 20150709

REACTIONS (1)
  - Dyspnoea exertional [Not Recovered/Not Resolved]
